FAERS Safety Report 15075392 (Version 1)
Quarter: 2018Q2

REPORT INFORMATION
  Report Type: Report from Study
  Country: US (occurrence: US)
  Receive Date: 20180627
  Receipt Date: 20180627
  Transmission Date: 20180711
  Serious: No
  Sender: FDA-Public Use
  Company Number: US-SAOL THERAPEUTICS-2018SAO00440

PATIENT
  Sex: Male

DRUGS (3)
  1. BUPIVACAINE. [Suspect]
     Active Substance: BUPIVACAINE
     Dosage: 0.5 MG, \DAY
     Route: 037
     Dates: start: 20150818
  2. BACLOFEN. [Suspect]
     Active Substance: BACLOFEN
     Dosage: 12.49 ?G, \DAY
     Route: 037
     Dates: start: 20150818
  3. FENTANYL. [Suspect]
     Active Substance: FENTANYL
     Dosage: 50 ?G, \DAY
     Route: 037
     Dates: start: 20150818

REACTIONS (4)
  - Somnolence [Not Recovered/Not Resolved]
  - Hyperhidrosis [Not Recovered/Not Resolved]
  - Nausea [Not Recovered/Not Resolved]
  - Constipation [Not Recovered/Not Resolved]

NARRATIVE: CASE EVENT DATE: 20150824
